FAERS Safety Report 8413840-9 (Version None)
Quarter: 2012Q2

REPORT INFORMATION
  Report Type: 
  Country: None (occurrence: None)
  Receive Date: 20120605
  Receipt Date: 20120521
  Transmission Date: 20120825
  Serious: No
  Sender: FDA-Public Use
  Company Number: US-ASTRAZENECA-2012SE32984

PATIENT
  Age: 51 Year
  Sex: Female

DRUGS (2)
  1. OMEPRAZOLE [Suspect]
     Route: 048
  2. NEXIUM [Concomitant]
     Route: 048

REACTIONS (7)
  - DYSPEPSIA [None]
  - DYSPHAGIA [None]
  - ADVERSE EVENT [None]
  - NON-CARDIAC CHEST PAIN [None]
  - REGURGITATION [None]
  - DIABETES MELLITUS [None]
  - HYPERTENSION [None]
